FAERS Safety Report 7285025-3 (Version None)
Quarter: 2011Q1

REPORT INFORMATION
  Report Type: 
  Country: None (occurrence: None)
  Receive Date: 20110204
  Receipt Date: 20110204
  Transmission Date: 20110831
  Serious: No
  Sender: FDA-Public Use
  Company Number: None

PATIENT
  Sex: Female

DRUGS (1)
  1. TIMOLOL MALEATE [Suspect]
     Indication: OPEN ANGLE GLAUCOMA
     Dosage: 1 GTT OU QHS EYE DROP
     Dates: start: 20100810, end: 20101210

REACTIONS (4)
  - ABNORMAL SENSATION IN EYE [None]
  - ASTHENOPIA [None]
  - PRODUCT SUBSTITUTION ISSUE [None]
  - INSTILLATION SITE FOREIGN BODY SENSATION [None]
